FAERS Safety Report 6538588-7 (Version None)
Quarter: 2010Q1

REPORT INFORMATION
  Report Type: 
  Country: None (occurrence: None)
  Receive Date: 20100113
  Receipt Date: 20100113
  Transmission Date: 20100710
  Serious: No
  Sender: FDA-Public Use
  Company Number: None

PATIENT
  Sex: Female
  Weight: 58.9676 kg

DRUGS (4)
  1. METFORMIN HCL [Suspect]
     Indication: TYPE 2 DIABETES MELLITUS
     Dosage: 1 DAILY PO
     Route: 048
     Dates: start: 20090223, end: 20090506
  2. LISINOPRIL [Suspect]
  3. COD LIVER OIL [Concomitant]
  4. LIQUID ALLERGY DROPS FOR MILK, EGGS, YEAST [Concomitant]

REACTIONS (5)
  - DEAFNESS NEUROSENSORY [None]
  - EAR DISCOMFORT [None]
  - FOOD ALLERGY [None]
  - HYPOACUSIS [None]
  - MILK ALLERGY [None]
